FAERS Safety Report 6320774-2 (Version None)
Quarter: 2009Q3

REPORT INFORMATION
  Report Type: 
  Country: None (occurrence: None)
  Receive Date: 20090822
  Receipt Date: 20081211
  Transmission Date: 20100115
  Serious: No
  Sender: FDA-Public Use
  Company Number: US-ABBOTT-08P-163-0492871-00

PATIENT
  Sex: Female

DRUGS (12)
  1. NIASPAN [Suspect]
     Indication: BLOOD TRIGLYCERIDES INCREASED
     Route: 048
     Dates: start: 20081126
  2. LIPITOR [Concomitant]
     Indication: DRUG USE FOR UNKNOWN INDICATION
  3. NEXIUM [Concomitant]
     Indication: DRUG USE FOR UNKNOWN INDICATION
  4. ASPIRIN [Concomitant]
     Indication: DRUG USE FOR UNKNOWN INDICATION
  5. ESTROGEN PATCH [Concomitant]
     Indication: DRUG USE FOR UNKNOWN INDICATION
  6. COENZYME Q10 [Concomitant]
     Indication: DRUG USE FOR UNKNOWN INDICATION
  7. M.V.I. [Concomitant]
     Indication: DRUG USE FOR UNKNOWN INDICATION
  8. FISH OIL [Concomitant]
     Indication: DRUG USE FOR UNKNOWN INDICATION
  9. VIT D [Concomitant]
     Indication: DRUG USE FOR UNKNOWN INDICATION
  10. VIT B12 [Concomitant]
     Indication: DRUG USE FOR UNKNOWN INDICATION
  11. FOLIC ACID [Concomitant]
     Indication: DRUG USE FOR UNKNOWN INDICATION
  12. ADVIL [Concomitant]
     Indication: DRUG USE FOR UNKNOWN INDICATION

REACTIONS (2)
  - FLUSHING [None]
  - PARAESTHESIA [None]
